FAERS Safety Report 5793523-4 (Version None)
Quarter: 2008Q2

REPORT INFORMATION
  Report Type: 
  Country: None (occurrence: None)
  Receive Date: 20080627
  Receipt Date: 20080624
  Transmission Date: 20081010
  Serious: Yes (Death)
  Sender: FDA-Public Use
  Company Number: JP-JNJFOC-20080606153

PATIENT
  Age: 3 Year
  Sex: Male

DRUGS (4)
  1. TOPINA [Suspect]
     Indication: PARTIAL SEIZURES
     Route: 048
  2. SELENICA-R [Concomitant]
     Route: 048
  3. TEGRETOL [Concomitant]
     Route: 048
  4. MYSTAN [Concomitant]
     Route: 048

REACTIONS (1)
  - ILL-DEFINED DISORDER [None]
